FAERS Safety Report 5215744-1 (Version None)
Quarter: 2007Q1

REPORT INFORMATION
  Report Type: 
  Country: None (occurrence: None)
  Receive Date: 20070123
  Receipt Date: 20070112
  Transmission Date: 20070707
  Serious: Yes (Other)
  Sender: FDA-Public Use
  Company Number: FR-ELI_LILLY_AND_COMPANY-FR200612004552

PATIENT
  Age: 63 Year
  Sex: Female

DRUGS (6)
  1. FORTEO [Suspect]
     Indication: OSTEOPOROSIS
     Dosage: 20 UG, DAILY (1/D)
     Route: 058
     Dates: start: 20061130, end: 20061207
  2. FORTEO [Suspect]
     Dosage: 20 UG, DAILY (1/D)
     Route: 058
     Dates: start: 20061223
  3. DOLIPRANE [Concomitant]
     Indication: PAIN
     Dosage: 2 G, DAILY (1/D)
     Route: 048
     Dates: start: 20061121, end: 20061207
  4. KLIPAL [Concomitant]
     Indication: BACK PAIN
     Dosage: 3 D/F, DAILY (1/D)
     Route: 048
     Dates: end: 20061121
  5. ACECLOFENAC [Concomitant]
     Indication: BACK PAIN
     Dosage: 100 MG, 2/D
     Route: 048
     Dates: end: 20061121
  6. DURAGESIC-100 [Concomitant]
     Indication: BACK PAIN
     Dates: end: 20061121

REACTIONS (4)
  - BLOOD ALKALINE PHOSPHATASE INCREASED [None]
  - GAMMA-GLUTAMYLTRANSFERASE INCREASED [None]
  - HEPATITIS [None]
  - TRANSAMINASES INCREASED [None]
